FAERS Safety Report 6828790-9 (Version None)
Quarter: 2010Q3

REPORT INFORMATION
  Report Type: 
  Country: None (occurrence: None)
  Receive Date: 20100709
  Receipt Date: 20070216
  Transmission Date: 20110219
  Serious: No
  Sender: FDA-Public Use
  Company Number: US-PFIZER INC-2007015268

PATIENT
  Sex: Female
  Weight: 66.22 kg

DRUGS (4)
  1. CHANTIX [Suspect]
     Indication: SMOKING CESSATION THERAPY
     Dates: start: 20070101
  2. CYMBALTA [Concomitant]
     Indication: DEPRESSION
  3. PREMARIN [Concomitant]
  4. OTHER HYPNOTICS AND SEDATIVES [Concomitant]

REACTIONS (4)
  - ABNORMAL DREAMS [None]
  - CONSTIPATION [None]
  - MENTAL IMPAIRMENT [None]
  - NERVOUSNESS [None]
